FAERS Safety Report 13190464 (Version 1)
Quarter: 2017Q1

REPORT INFORMATION
  Report Type: Spontaneous
  Country: US (occurrence: US)
  Receive Date: 20170206
  Receipt Date: 20170206
  Transmission Date: 20170428
  Serious: Yes (Hospitalization, Other)
  Sender: FDA-Public Use
  Company Number: US-009507513-1702USA001609

PATIENT
  Age: 43 Year
  Sex: Female

DRUGS (2)
  1. HYDROCORTONE [Suspect]
     Active Substance: HYDROCORTISONE
     Indication: ADRENAL INSUFFICIENCY
     Dosage: 100 MG, TID
     Route: 048
  2. HYDROCORTONE [Suspect]
     Active Substance: HYDROCORTISONE
     Indication: SEPSIS
     Dosage: 25 MG, BID
     Route: 048

REACTIONS (1)
  - Reversible cerebral vasoconstriction syndrome [Recovered/Resolved]
